FAERS Safety Report 13384920 (Version 1)
Quarter: 2017Q1

REPORT INFORMATION
  Report Type: Spontaneous
  Country: US (occurrence: US)
  Receive Date: 20170329
  Receipt Date: 20170329
  Transmission Date: 20170429
  Serious: No
  Sender: FDA-Public Use
  Company Number: US-PFIZER INC-2017133039

PATIENT

DRUGS (2)
  1. ZOLOFT [Suspect]
     Active Substance: SERTRALINE HYDROCHLORIDE
     Dosage: UNK
  2. KLONOPIN [Suspect]
     Active Substance: CLONAZEPAM
     Dosage: UNK

REACTIONS (8)
  - Dizziness [Unknown]
  - Syncope [Unknown]
  - Palpitations [Unknown]
  - Condition aggravated [Unknown]
  - Oral pain [Unknown]
  - Abdominal discomfort [Unknown]
  - Vomiting [Unknown]
  - Oropharyngeal pain [Unknown]
